FAERS Safety Report 25734323 (Version 1)
Quarter: 2025Q3

REPORT INFORMATION
  Report Type: Spontaneous
  Country: CN (occurrence: CN)
  Receive Date: 20250828
  Receipt Date: 20250828
  Transmission Date: 20251020
  Serious: Yes (Hospitalization, Disabling)
  Sender: ALEXION PHARMACEUTICALS
  Company Number: CN-ASTRAZENECA-202508CHN018818CN

PATIENT
  Age: 76 Year
  Sex: Female
  Weight: 58.2 kg

DRUGS (2)
  1. LYNPARZA [Suspect]
     Active Substance: OLAPARIB
     Indication: Breast cancer
     Dosage: 300 MILLIGRAM, BID
     Dates: start: 20250424, end: 20250815
  2. DENOSUMAB [Concomitant]
     Active Substance: DENOSUMAB
     Indication: Bone cancer
     Dosage: 120 MILLIGRAM, QMONTH
     Dates: start: 20250404, end: 20250820

REACTIONS (2)
  - Myelosuppression [Recovering/Resolving]
  - Pneumonia [Recovering/Resolving]

NARRATIVE: CASE EVENT DATE: 20250814
